FAERS Safety Report 20107330 (Version 2)
Quarter: 2021Q4

REPORT INFORMATION
  Report Type: Spontaneous
  Country: GB (occurrence: GB)
  Receive Date: 20211124
  Receipt Date: 20211210
  Transmission Date: 20220303
  Serious: Yes (Other)
  Sender: FDA-Public Use
  Company Number: GB-ALLERGAN-2139686US

PATIENT
  Sex: Female

DRUGS (2)
  1. BOTOX [Suspect]
     Active Substance: ONABOTULINUMTOXINA
     Indication: Product used for unknown indication
     Dosage: UNK UNK, SINGLE
  2. JUVEDERM [Concomitant]
     Active Substance: HYALURONIC ACID

REACTIONS (3)
  - Throat cancer [Unknown]
  - Paraesthesia oral [Unknown]
  - Tooth disorder [Recovered/Resolved]
